FAERS Safety Report 4797450-0 (Version None)
Quarter: 2005Q4

REPORT INFORMATION
  Report Type: 
  Country: None (occurrence: None)
  Receive Date: 20051006
  Receipt Date: 20051006
  Transmission Date: 20060501
  Serious: Yes (Life-Threatening, Hospitalization)
  Sender: FDA-Public Use
  Company Number: None

PATIENT
  Age: 71 Year
  Sex: Female

DRUGS (6)
  1. TAMOXIFEN [Suspect]
     Indication: BREAST CANCER
     Dosage: 10MG PO BID
     Route: 048
  2. ASPIRIN [Concomitant]
  3. CLONIDINE [Concomitant]
  4. METOPROLOL [Concomitant]
  5. VALSARTAN [Concomitant]
  6. ATORVASTATIN [Concomitant]

REACTIONS (4)
  - CHEST PAIN [None]
  - DYSPNOEA EXERTIONAL [None]
  - PLEURITIC PAIN [None]
  - PULMONARY EMBOLISM [None]
